FAERS Safety Report 7358152-X (Version None)
Quarter: 2011Q1

REPORT INFORMATION
  Report Type: 
  Country: None (occurrence: None)
  Receive Date: 20110317
  Receipt Date: 20110310
  Transmission Date: 20110831
  Serious: Yes (Life-Threatening, Hospitalization, Other)
  Sender: FDA-Public Use
  Company Number: US-ELI_LILLY_AND_COMPANY-US201102005580

PATIENT
  Age: 60 Year
  Sex: Female
  Weight: 63.5 kg

DRUGS (3)
  1. EFFIENT [Suspect]
     Indication: PERCUTANEOUS CORONARY INTERVENTION
     Dosage: 10 MG, DAILY (1/D)
     Route: 048
  2. ANGIOMAX [Concomitant]
  3. ASPIRIN [Concomitant]

REACTIONS (5)
  - ANGINA UNSTABLE [None]
  - HAEMORRHAGE [None]
  - VASCULAR GRAFT [None]
  - ACUTE MYOCARDIAL INFARCTION [None]
  - ARTERIAL INJURY [None]
